FAERS Safety Report 12924089 (Version 4)
Quarter: 2017Q3

REPORT INFORMATION
  Report Type: Report from Study
  Country: NO (occurrence: NO)
  Receive Date: 20161109
  Receipt Date: 20170717
  Transmission Date: 20171127
  Serious: Yes (Death)
  Sender: FDA-Public Use
  Company Number: NO-ROCHE-1851869

PATIENT
  Age: 81 Year

DRUGS (1)
  1. ALTEPLASE. [Suspect]
     Active Substance: ALTEPLASE
     Indication: ISCHAEMIC STROKE
     Dosage: 10% AS A BOLUS AND 90% OVER THE NEXT HOUR PLUS STANDARD CARE OR STANDARD CARE ALONE WITHIN 6 HOUR OF
     Route: 042

REACTIONS (1)
  - Cerebrovascular accident [Fatal]
